FAERS Safety Report 6903689-8 (Version None)
Quarter: 2010Q3

REPORT INFORMATION
  Report Type: 
  Country: None (occurrence: None)
  Receive Date: 20100803
  Receipt Date: 20081124
  Transmission Date: 20110219
  Serious: No
  Sender: FDA-Public Use
  Company Number: US-PFIZER INC-2008098248

PATIENT
  Sex: Female
  Weight: 52.16 kg

DRUGS (6)
  1. LYRICA [Suspect]
     Indication: SCIATICA
     Dates: start: 20080501
  2. COREG [Concomitant]
  3. CLONAZEPAM [Concomitant]
  4. OXYCODONE [Concomitant]
  5. FENTANYL CITRATE [Concomitant]
  6. WELLBUTRIN [Concomitant]

REACTIONS (2)
  - HYPOAESTHESIA [None]
  - PAIN IN EXTREMITY [None]
